FAERS Safety Report 19173065 (Version 1)
Quarter: 2021Q2

REPORT INFORMATION
  Report Type: Spontaneous
  Country: US (occurrence: US)
  Receive Date: 20210422
  Receipt Date: 20210422
  Transmission Date: 20210717
  Serious: Yes (Hospitalization)
  Sender: FDA-Public Use
  Company Number: None

PATIENT
  Age: 25 Year
  Sex: Male

DRUGS (4)
  1. ASPIRIN 81 [Concomitant]
     Active Substance: ASPIRIN
     Dates: start: 20121017
  2. AMBRISENTAN [Suspect]
     Active Substance: AMBRISENTAN
     Indication: PULMONARY HYPERTENSION
     Route: 048
     Dates: start: 20190912
  3. RIFAMPIN. [Concomitant]
     Active Substance: RIFAMPIN
     Dates: start: 20150908
  4. VANCOMYCIN [Concomitant]
     Active Substance: VANCOMYCIN
     Dates: start: 20150908

REACTIONS (3)
  - Pneumonia [None]
  - Endocarditis [None]
  - Cardiac operation [None]

NARRATIVE: CASE EVENT DATE: 20210328
